FAERS Safety Report 5356388-0 (Version None)
Quarter: 2007Q2

REPORT INFORMATION
  Report Type: 
  Country: None (occurrence: None)
  Receive Date: 20070530
  Receipt Date: 20061214
  Transmission Date: 20071010
  Serious: Yes (Hospitalization, Other)
  Sender: FDA-Public Use
  Company Number: US200609006144

PATIENT
  Age: 35 Year
  Sex: Female
  Weight: 52.6 kg

DRUGS (2)
  1. ZYPREXA [Suspect]
     Indication: BIPOLAR DISORDER
     Dates: start: 19970101, end: 19980101
  2. PROZAC [Concomitant]

REACTIONS (7)
  - ACETONAEMIA [None]
  - BLOOD CHOLESTEROL INCREASED [None]
  - DIABETES MELLITUS [None]
  - DIABETIC KETOACIDOSIS [None]
  - KETONURIA [None]
  - METABOLIC DISORDER [None]
  - PANCREATITIS [None]
